FAERS Safety Report 21446618 (Version 2)
Quarter: 2022Q4

REPORT INFORMATION
  Report Type: Spontaneous
  Country: AR (occurrence: AR)
  Receive Date: 20221012
  Receipt Date: 20221014
  Transmission Date: 20230113
  Serious: Yes (Other)
  Sender: FDA-Public Use
  Company Number: AR-HALEON-ARCH2022GSK037686

PATIENT

DRUGS (1)
  1. IBUPROFEN [Suspect]
     Active Substance: IBUPROFEN
     Indication: Headache
     Dosage: 600 MG
     Route: 048

REACTIONS (4)
  - Orbital compartment syndrome [Recovering/Resolving]
  - Angioedema [Recovering/Resolving]
  - Visual acuity reduced [Not Recovered/Not Resolved]
  - Eyelid oedema [Recovering/Resolving]
